FAERS Safety Report 4968922-0 (Version None)
Quarter: 2006Q2

REPORT INFORMATION
  Report Type: 
  Country: None (occurrence: None)
  Receive Date: 20060411
  Receipt Date: 20050921
  Transmission Date: 20061013
  Serious: Yes (Hospitalization, Other)
  Sender: FDA-Public Use
  Company Number: US-MERCK-0509USA03184

PATIENT
  Age: 58 Year
  Sex: Male

DRUGS (2)
  1. VIOXX [Suspect]
     Indication: PAIN
     Route: 048
  2. VIOXX [Suspect]
     Indication: POLYMYALGIA
     Route: 048

REACTIONS (5)
  - BLOOD PRESSURE DIASTOLIC DECREASED [None]
  - BRONCHITIS [None]
  - CEREBROVASCULAR ACCIDENT [None]
  - MYOCARDIAL INFARCTION [None]
  - POLYTRAUMATISM [None]
